FAERS Safety Report 25739237 (Version 1)
Quarter: 2025Q3

REPORT INFORMATION
  Report Type: Spontaneous
  Country: US (occurrence: US)
  Receive Date: 20250829
  Receipt Date: 20250829
  Transmission Date: 20251021
  Serious: Yes (Other)
  Sender: Kenvue
  Company Number: US-KENVUE-20250808028

PATIENT
  Age: 4 Decade
  Sex: Female
  Weight: 77.551 kg

DRUGS (4)
  1. TYLENOL [Suspect]
     Active Substance: ACETAMINOPHEN
     Indication: Migraine
     Route: 048
     Dates: start: 2000
  2. NURTEC ODT [Suspect]
     Active Substance: RIMEGEPANT SULFATE
     Indication: Migraine
     Route: 048
     Dates: start: 2022
  3. PANTOPRAZOLE [Concomitant]
     Active Substance: PANTOPRAZOLE
     Indication: Nausea
     Dosage: 40 MILLIGRAM, ONCE A DAY (QD)
     Route: 048
     Dates: start: 20241127
  4. VITAMIN B6 [Concomitant]
     Active Substance: PYRIDOXINE HYDROCHLORIDE
     Indication: Nausea
     Dosage: 50 MILLIGRAM, THRICE A DAY
     Route: 048
     Dates: start: 20241127

REACTIONS (3)
  - Gestational hypertension [Unknown]
  - Exposure during pregnancy [Unknown]
  - Incorrect dose administered [Unknown]

NARRATIVE: CASE EVENT DATE: 20000101
